FAERS Safety Report 7694092-4 (Version None)
Quarter: 2011Q3

REPORT INFORMATION
  Report Type: 
  Country: None (occurrence: None)
  Receive Date: 20110819
  Receipt Date: 20110805
  Transmission Date: 20111222
  Serious: Yes (Other)
  Sender: FDA-Public Use
  Company Number: GB-GENENTECH-323078

PATIENT
  Sex: Female
  Weight: 82.4 kg

DRUGS (12)
  1. BAMBUTEROL [Concomitant]
     Indication: PRODUCT USED FOR UNKNOWN INDICATION
  2. XOLAIR [Suspect]
     Dosage: 150 MG, 1/MONTH
     Route: 058
     Dates: start: 20110804
  3. ALBUTEROL [Concomitant]
     Indication: PRODUCT USED FOR UNKNOWN INDICATION
  4. CICLESONIDE [Concomitant]
     Indication: PRODUCT USED FOR UNKNOWN INDICATION
  5. MONTELUKAST SODIUM [Concomitant]
     Indication: PRODUCT USED FOR UNKNOWN INDICATION
  6. BETADINE [Concomitant]
     Indication: PRODUCT USED FOR UNKNOWN INDICATION
  7. SERETIDE [Concomitant]
     Indication: PRODUCT USED FOR UNKNOWN INDICATION
  8. XOLAIR [Suspect]
     Indication: ASTHMA
     Dosage: 150 MG, 1/MONTH
     Route: 058
     Dates: start: 20110512
  9. XOLAIR [Suspect]
     Dosage: 150 MG, 1/MONTH
     Route: 058
     Dates: start: 20110609
  10. XOLAIR [Suspect]
     Dosage: 150 MG, 1/MONTH
     Route: 058
     Dates: start: 20110707
  11. ALENDRONIC ACID [Concomitant]
     Indication: PRODUCT USED FOR UNKNOWN INDICATION
  12. PENTASA [Concomitant]
     Indication: PRODUCT USED FOR UNKNOWN INDICATION

REACTIONS (2)
  - CHOLELITHIASIS [None]
  - CROHN'S DISEASE [None]
